FAERS Safety Report 4739886-X (Version None)
Quarter: 2005Q3

REPORT INFORMATION
  Report Type: 
  Country: None (occurrence: None)
  Receive Date: 20050805
  Receipt Date: 20050725
  Transmission Date: 20060218
  Serious: Yes (Hospitalization, Other)
  Sender: FDA-Public Use
  Company Number: 05-07-1319

PATIENT
  Age: 86 Year
  Sex: Female

DRUGS (2)
  1. CLOZAPINE [Suspect]
     Indication: ANXIETY
     Dosage: 62.5-100MG QD ORAL
     Route: 048
     Dates: start: 20041201, end: 20050701
  2. CLOZAPINE [Suspect]
     Indication: DEPRESSION
     Dosage: 62.5-100MG QD ORAL
     Route: 048
     Dates: start: 20041201, end: 20050701

REACTIONS (1)
  - CEREBROVASCULAR ACCIDENT [None]
